FAERS Safety Report 24614428 (Version 5)
Quarter: 2025Q4

REPORT INFORMATION
  Report Type: Report from Study
  Country: US (occurrence: None)
  Receive Date: 20241113
  Receipt Date: 20251106
  Transmission Date: 20260117
  Serious: Yes (Other)
  Sender: UCB
  Company Number: US-UCBSA-2024043888

PATIENT
  Age: 16 Year
  Weight: 51.7 kg

DRUGS (5)
  1. FENFLURAMINE [Suspect]
     Active Substance: FENFLURAMINE
     Indication: Lennox-Gastaut syndrome
     Dosage: 4 MG/DAY
  2. FENFLURAMINE [Suspect]
     Active Substance: FENFLURAMINE
     Dosage: 2 MILLILITER, 2X/DAY (BID)
  3. FENFLURAMINE [Suspect]
     Active Substance: FENFLURAMINE
     Dosage: 2.2 MG/KG/DAY FOR A TOTAL DAILY DOSE 12 MILLIGRAM/DAY
  4. FENFLURAMINE [Suspect]
     Active Substance: FENFLURAMINE
     Dosage: 4 MILLIGRAM PER DAY
  5. CLOBAZAM [Concomitant]
     Active Substance: CLOBAZAM
     Indication: Product used for unknown indication
     Dosage: UNK

REACTIONS (3)
  - Tricuspid valve incompetence [Unknown]
  - Non-compaction cardiomyopathy [Unknown]
  - Weight increased [Recovered/Resolved]
